FAERS Safety Report 11091510 (Version 2)
Quarter: 2015Q2

REPORT INFORMATION
  Report Type: Spontaneous
  Country: US (occurrence: US)
  Receive Date: 20150505
  Receipt Date: 20150520
  Transmission Date: 20150821
  Serious: No
  Sender: FDA-Public Use
  Company Number: US-PFIZER INC-2015141308

PATIENT

DRUGS (1)
  1. ADVIL [Suspect]
     Active Substance: IBUPROFEN
     Dosage: UNK

REACTIONS (5)
  - Procedural pain [Unknown]
  - Medial tibial stress syndrome [Unknown]
  - Drug ineffective [Unknown]
  - Liver disorder [Unknown]
  - Condition aggravated [Unknown]
